FAERS Safety Report 11682689 (Version 2)
Quarter: 2015Q4

REPORT INFORMATION
  Report Type: Spontaneous
  Country: TW (occurrence: TW)
  Receive Date: 20151029
  Receipt Date: 20151118
  Transmission Date: 20160304
  Serious: Yes (Hospitalization, Other)
  Sender: FDA-Public Use
  Company Number: TW-AMGEN-TWNSP2015055000

PATIENT
  Age: 59 Year
  Sex: Female

DRUGS (2)
  1. ENBREL [Suspect]
     Active Substance: ETANERCEPT
     Indication: RHEUMATOID ARTHRITIS
     Dosage: 50 MG EVERY 10 DAYS
     Route: 058
     Dates: start: 201410, end: 20150514
  2. ENBREL [Suspect]
     Active Substance: ETANERCEPT
     Dosage: 50 MG SIX DOSES PER TWELVE WEEKS
     Route: 058
     Dates: start: 20150514

REACTIONS (2)
  - Arthropathy [Recovering/Resolving]
  - Mycobacterium tuberculosis complex test positive [Unknown]

NARRATIVE: CASE EVENT DATE: 20150512
